FAERS Safety Report 4467629-6 (Version None)
Quarter: 2004Q4

REPORT INFORMATION
  Report Type: 
  Country: None (occurrence: None)
  Receive Date: 20041004
  Receipt Date: 20041004
  Transmission Date: 20050328
  Serious: Yes (Hospitalization)
  Sender: FDA-Public Use
  Company Number: None

PATIENT
  Sex: Female
  Weight: 108.8633 kg

DRUGS (2)
  1. LORCET-HD [Suspect]
     Dosage: THREE TIMES A DAY
  2. VICODIN ES [Suspect]
     Dosage: FOUR TIMES A DAY

REACTIONS (6)
  - ABASIA [None]
  - ABDOMINAL DISCOMFORT [None]
  - ASTHENIA [None]
  - DISORIENTATION [None]
  - NAUSEA [None]
  - VOMITING [None]
